FAERS Safety Report 5371001-4 (Version None)
Quarter: 2007Q2

REPORT INFORMATION
  Report Type: 
  Country: None (occurrence: None)
  Receive Date: 20070626
  Receipt Date: 20070615
  Transmission Date: 20071010
  Serious: Yes (Hospitalization)
  Sender: FDA-Public Use
  Company Number: CA-ELI_LILLY_AND_COMPANY-CA200706004437

PATIENT
  Age: 68 Year
  Sex: Female

DRUGS (7)
  1. FORTEO [Suspect]
     Indication: OSTEOPOROSIS
     Dosage: 20 UG, DAILY (1/D)
     Route: 058
     Dates: start: 20061019, end: 20070517
  2. VOLTAREN                                /SCH/ [Concomitant]
  3. CELEXA [Concomitant]
  4. NEXIUM [Concomitant]
  5. TYLENOL NO.2 [Concomitant]
  6. OXYCODONE HCL [Concomitant]
  7. CENTRUM [Concomitant]

REACTIONS (2)
  - ARTHRALGIA [None]
  - KNEE ARTHROPLASTY [None]
